FAERS Safety Report 17391571 (Version 2)
Quarter: 2020Q1

REPORT INFORMATION
  Report Type: Report from Study
  Country: ES (occurrence: ES)
  Receive Date: 20200207
  Receipt Date: 20200229
  Transmission Date: 20200409
  Serious: Yes (Hospitalization, Other)
  Sender: FDA-Public Use
  Company Number: ES-ROCHE-2472354

PATIENT
  Age: 45 Year
  Sex: Male
  Weight: 74 kg

DRUGS (62)
  1. CYCLOPHOSPHAMIDE. [Suspect]
     Active Substance: CYCLOPHOSPHAMIDE
     Indication: B-CELL LYMPHOMA
     Dosage: CYCLOPHOSPHAMIDE 750 MILLIGRAMS PER SQUARE METRE (MG/M^2), ADMINISTERED INTRAVENOUSLY (IV) ON DAY 1
     Route: 042
     Dates: start: 20191010
  2. PREDNISONE. [Suspect]
     Active Substance: PREDNISONE
     Indication: B-CELL LYMPHOMA
     Dosage: PREDNISONE 100 MG ADMINISTERED ORALLY ON DAYS 1-5 OF EACH 21-DAY CYCLE, FOR SIX CYCLES FOR CHOP TREA
     Route: 048
     Dates: start: 20191012
  3. ALOPURINOL [Concomitant]
     Active Substance: ALLOPURINOL
     Route: 065
     Dates: start: 20191121, end: 20191125
  4. PARACETAMOL [Concomitant]
     Active Substance: ACETAMINOPHEN
     Dosage: CYCLE 2 DAY 1; START TIME 12:54, END TIME: 13.13
     Route: 042
     Dates: start: 20191212, end: 20191212
  5. PARACETAMOL [Concomitant]
     Active Substance: ACETAMINOPHEN
     Dosage: CYCLE 2 DAY 1; START TIME 12:54, END TIME: 13.13
     Route: 042
     Dates: start: 20200114, end: 20200114
  6. DEXCHLORPHENIRAMINE [Concomitant]
     Active Substance: DEXCHLORPHENIRAMINE
     Route: 065
     Dates: start: 20200114, end: 20200114
  7. DEXCHLORPHENIRAMINE [Concomitant]
     Active Substance: DEXCHLORPHENIRAMINE
     Route: 065
     Dates: start: 20191031, end: 20191031
  8. FILGRASTIM [Concomitant]
     Active Substance: FILGRASTIM
     Indication: NEUTROPENIA
     Route: 065
     Dates: start: 20191025, end: 20191029
  9. METHYLPREDNISOLONE. [Concomitant]
     Active Substance: METHYLPREDNISOLONE
     Indication: PREMEDICATION
     Dosage: CYCLE 1 DAY 1; START TIME: 12:30, END TIME 12:45
     Route: 042
     Dates: start: 20191010, end: 20191010
  10. METHYLPREDNISOLONE. [Concomitant]
     Active Substance: METHYLPREDNISOLONE
     Route: 042
     Dates: start: 20200114, end: 20200114
  11. METOCLOPRAMIDE. [Concomitant]
     Active Substance: METOCLOPRAMIDE
     Route: 065
     Dates: start: 20200114
  12. DEXCHLORPHENIRAMINE [Concomitant]
     Active Substance: DEXCHLORPHENIRAMINE
     Route: 065
     Dates: start: 20191010, end: 20191010
  13. FILGRASTIM [Concomitant]
     Active Substance: FILGRASTIM
     Route: 065
     Dates: start: 20191107, end: 20191108
  14. DEXCHLORPHENIRAMINE [Concomitant]
     Active Substance: DEXCHLORPHENIRAMINE
     Dosage: CYCLE 1 DAY 15; START TIME 11:45, END TIME: 12:00
     Route: 042
     Dates: start: 20191024, end: 20191024
  15. OBINUTUZUMAB. [Suspect]
     Active Substance: OBINUTUZUMAB
     Indication: B-CELL LYMPHOMA
     Dosage: ADMINISTERED ON DAY 1, 8 AND 15 DURING CYCLE 1, AND ON DAY 1 OF SUBSEQUENT CYCLES, FOR 6-8 CYCLES.?D
     Route: 042
     Dates: start: 20191010
  16. HYDROCORTISONE SODIUM PHOSPHATE [Concomitant]
     Active Substance: HYDROCORTISONE SODIUM PHOSPHATE
     Route: 065
     Dates: start: 20191024, end: 20191024
  17. PARACETAMOL [Concomitant]
     Active Substance: ACETAMINOPHEN
     Dosage: CYCLE 2 DAY 1; START TIME 12:54, END TIME: 13.13
     Route: 042
     Dates: start: 20191226, end: 20191226
  18. FILGRASTIM [Concomitant]
     Active Substance: FILGRASTIM
     Route: 065
     Dates: start: 20191228, end: 20191230
  19. DEXCHLORPHENIRAMINE [Concomitant]
     Active Substance: DEXCHLORPHENIRAMINE
     Dosage: CYCLE 2 DAY 1; START TIME 12:23 END TIME: 12:40
     Route: 042
     Dates: start: 20191031, end: 20191031
  20. METHYLPREDNISOLONE. [Concomitant]
     Active Substance: METHYLPREDNISOLONE
     Dosage: CYCLE 1 DAY 15; START TIME: 11:15, END TIME 11:25
     Route: 042
     Dates: start: 20191024, end: 20191024
  21. METHYLPREDNISOLONE. [Concomitant]
     Active Substance: METHYLPREDNISOLONE
     Dosage: CYCLE 2 DAY 1; START TIME: 12:14, END TIME 12:55
     Route: 042
     Dates: start: 20191121, end: 20191121
  22. CLAVULANATE POTASSIUM [Concomitant]
     Active Substance: CLAVULANATE POTASSIUM
     Indication: UPPER RESPIRATORY TRACT INFECTION
     Route: 065
     Dates: start: 20121226, end: 20121231
  23. ALOPURINOL [Concomitant]
     Active Substance: ALLOPURINOL
     Route: 065
     Dates: start: 20191226, end: 20191231
  24. DEXCHLORPHENIRAMINE MALEATE. [Concomitant]
     Active Substance: DEXCHLORPHENIRAMINE MALEATE
     Indication: INFUSION RELATED REACTION
     Route: 065
     Dates: start: 20191010, end: 20191010
  25. DEXCHLORPHENIRAMINE MALEATE. [Concomitant]
     Active Substance: DEXCHLORPHENIRAMINE MALEATE
     Route: 065
     Dates: start: 20191121, end: 20191121
  26. PARACETAMOL [Concomitant]
     Active Substance: ACETAMINOPHEN
     Dosage: CYCLE 1 DAY 1; START TIME 13:00, END TIME: 13:20
     Route: 042
     Dates: start: 20191010, end: 20191010
  27. DEXCHLORPHENIRAMINE [Concomitant]
     Active Substance: DEXCHLORPHENIRAMINE
     Route: 065
     Dates: start: 20191212, end: 20191212
  28. DEXCHLORPHENIRAMINE [Concomitant]
     Active Substance: DEXCHLORPHENIRAMINE
     Route: 065
     Dates: start: 20191121, end: 20191121
  29. FILGRASTIM [Concomitant]
     Active Substance: FILGRASTIM
     Route: 065
     Dates: start: 20191121, end: 20191121
  30. DEXCHLORPHENIRAMINE [Concomitant]
     Active Substance: DEXCHLORPHENIRAMINE
     Dosage: CYCLE 1 DAY 8; START TIME 11:49, END TIME: 12:01
     Route: 042
     Dates: start: 20191017, end: 20191017
  31. METHYLPREDNISOLONE. [Concomitant]
     Active Substance: METHYLPREDNISOLONE
     Dosage: CYCLE 2 DAY 1; START TIME: 12:14, END TIME 12:55
     Route: 042
     Dates: start: 20191031, end: 20191031
  32. ONDANSETRON [Concomitant]
     Active Substance: ONDANSETRON
     Indication: PREMEDICATION
     Route: 042
     Dates: start: 20200114, end: 20200114
  33. VINCRISTINE [Suspect]
     Active Substance: VINCRISTINE
     Indication: B-CELL LYMPHOMA
     Dosage: VINCRISTINE 1.4 MG/M^2 (MAXIMUM 2 MG) IV, ADMINISTERED ON DAY 1 OF EACH 21-DAY CYCLE, FOR SIX CYCLES
     Route: 042
     Dates: start: 20191010
  34. SULFAMETHOXAZOLE [Concomitant]
     Active Substance: SULFAMETHOXAZOLE
     Route: 065
     Dates: start: 20191011
  35. HYDROCORTISONE SODIUM PHOSPHATE [Concomitant]
     Active Substance: HYDROCORTISONE SODIUM PHOSPHATE
     Route: 065
     Dates: start: 20191121, end: 20191121
  36. PARACETAMOL [Concomitant]
     Active Substance: ACETAMINOPHEN
     Dosage: CYCLE 2 DAY 1; START TIME 12:08, END TIME: 12:22
     Route: 042
     Dates: start: 20191031, end: 20191031
  37. DEXCHLORPHENIRAMINE [Concomitant]
     Active Substance: DEXCHLORPHENIRAMINE
     Indication: INFUSION RELATED REACTION
     Route: 065
     Dates: start: 20191017, end: 20191017
  38. METOCLOPRAMIDE. [Concomitant]
     Active Substance: METOCLOPRAMIDE
     Route: 065
     Dates: start: 20191011, end: 20191016
  39. ALOPURINOL [Concomitant]
     Active Substance: ALLOPURINOL
     Route: 065
     Dates: start: 20191011, end: 20191126
  40. ALOPURINOL [Concomitant]
     Active Substance: ALLOPURINOL
     Route: 065
     Dates: start: 20191212, end: 20191217
  41. ALOPURINOL [Concomitant]
     Active Substance: ALLOPURINOL
     Route: 065
     Dates: start: 20200114, end: 20200119
  42. TRIMETHOPRIM. [Concomitant]
     Active Substance: TRIMETHOPRIM
     Route: 065
     Dates: start: 20191011
  43. AMOXICILLIN. [Concomitant]
     Active Substance: AMOXICILLIN
     Route: 065
     Dates: start: 20191107, end: 20191120
  44. OMEPRAZOLE. [Concomitant]
     Active Substance: OMEPRAZOLE
     Route: 065
     Dates: start: 20191011
  45. PARACETAMOL [Concomitant]
     Active Substance: ACETAMINOPHEN
     Indication: PREMEDICATION
     Route: 042
     Dates: start: 20191010, end: 20191010
  46. PARACETAMOL [Concomitant]
     Active Substance: ACETAMINOPHEN
     Dosage: CYCLE 2 DAY 1; START TIME 12:54, END TIME: 13.13
     Route: 042
     Dates: start: 20191121, end: 20191121
  47. DEXCHLORPHENIRAMINE [Concomitant]
     Active Substance: DEXCHLORPHENIRAMINE
     Route: 065
     Dates: start: 20191024, end: 20191024
  48. FILGRASTIM [Concomitant]
     Active Substance: FILGRASTIM
     Route: 065
     Dates: start: 20191206, end: 20191209
  49. AMOXICILLIN. [Concomitant]
     Active Substance: AMOXICILLIN
     Route: 065
     Dates: start: 20191226, end: 20191231
  50. DEXCHLORPHENIRAMINE [Concomitant]
     Active Substance: DEXCHLORPHENIRAMINE
     Indication: PREMEDICATION
     Dosage: CYCLE 1 DAY 1; START TIME 13:00, END TIME: 13:05
     Route: 042
     Dates: start: 20191010, end: 20191010
  51. METHYLPREDNISOLONE. [Concomitant]
     Active Substance: METHYLPREDNISOLONE
     Dosage: CYCLE 1 DAY 8; START TIME: 12:01, END TIME 12:13
     Route: 042
     Dates: start: 20191017, end: 20191017
  52. ONDANSETRON [Concomitant]
     Active Substance: ONDANSETRON
     Route: 042
     Dates: start: 20191212, end: 20191212
  53. ONDANSETRON [Concomitant]
     Active Substance: ONDANSETRON
     Route: 042
     Dates: start: 20191031, end: 20191031
  54. DOXORUBICIN [Suspect]
     Active Substance: DOXORUBICIN
     Indication: B-CELL LYMPHOMA
     Dosage: DOXORUBICIN 50 MG/M^2 IV, ADMINISTERED ON DAY 1 OF EACH 21-DAY CYCLE, FOR SIX CYCLES.?DATE OF MOST R
     Route: 042
     Dates: start: 20191010
  55. HYDROCORTISONE SODIUM PHOSPHATE [Concomitant]
     Active Substance: HYDROCORTISONE SODIUM PHOSPHATE
     Indication: LARYNGEAL OEDEMA
     Route: 065
     Dates: start: 20191010, end: 20191010
  56. HYDROCORTISONE SODIUM PHOSPHATE [Concomitant]
     Active Substance: HYDROCORTISONE SODIUM PHOSPHATE
     Indication: INFUSION RELATED REACTION
     Route: 065
     Dates: start: 20191017, end: 20191017
  57. PARACETAMOL [Concomitant]
     Active Substance: ACETAMINOPHEN
     Indication: INFUSION RELATED REACTION
     Route: 065
     Dates: start: 20191106, end: 20191106
  58. PARACETAMOL [Concomitant]
     Active Substance: ACETAMINOPHEN
     Dosage: CYCLE 1 DAY 8; START TIME 11:34, END TIME: 11:49
     Route: 042
     Dates: start: 20191017, end: 20191017
  59. PARACETAMOL [Concomitant]
     Active Substance: ACETAMINOPHEN
     Dosage: CYCLE 1 DAY 15; START TIME 11:25, END TIME: 11:45
     Route: 042
     Dates: start: 20191024, end: 20191024
  60. IBUPROFEN. [Concomitant]
     Active Substance: IBUPROFEN
     Indication: ODYNOPHAGIA
     Route: 065
     Dates: start: 20191015, end: 20191017
  61. METHYLPREDNISOLONE. [Concomitant]
     Active Substance: METHYLPREDNISOLONE
     Route: 042
     Dates: start: 20191212, end: 20191212
  62. ONDANSETRON [Concomitant]
     Active Substance: ONDANSETRON
     Route: 042
     Dates: start: 20191121, end: 20191121

REACTIONS (3)
  - Haematuria [Recovered/Resolved]
  - Thrombocytopenia [Recovered/Resolved]
  - Thrombocytopenia [Recovered/Resolved]

NARRATIVE: CASE EVENT DATE: 20191107
